FAERS Safety Report 4953946-X (Version None)
Quarter: 2006Q1

REPORT INFORMATION
  Report Type: 
  Country: None (occurrence: None)
  Receive Date: 20060327
  Receipt Date: 20060314
  Transmission Date: 20060701
  Serious: Yes (Other)
  Sender: FDA-Public Use
  Company Number: IT-JNJFOC-20060306017

PATIENT
  Sex: Female

DRUGS (2)
  1. CAELYX [Suspect]
     Route: 042
  2. GEMCITABINE [Suspect]
     Route: 042

REACTIONS (4)
  - ERYTHEMA [None]
  - HYPERTENSION [None]
  - INFUSION RELATED REACTION [None]
  - TACHYCARDIA [None]
